FAERS Safety Report 6427826-7 (Version None)
Quarter: 2009Q4

REPORT INFORMATION
  Report Type: 
  Country: None (occurrence: None)
  Receive Date: 20091104
  Receipt Date: 20091104
  Transmission Date: 20100525
  Serious: Yes (Disabling)
  Sender: FDA-Public Use
  Company Number: None

PATIENT
  Sex: Female
  Weight: 58.0604 kg

DRUGS (2)
  1. ZANTAC [Suspect]
     Indication: DYSPEPSIA
     Dosage: TWICE A DAY DAILY THROUGHOUT PREGNANCY
     Dates: start: 19860101
  2. LIQUID SUDAFED - ORANGE [Suspect]
     Indication: COUGH
     Dosage: DAILY UNTIL COUGH WAS GONE

REACTIONS (1)
  - DRUG EXPOSURE DURING PREGNANCY [None]
